FAERS Safety Report 8300913-4 (Version None)
Quarter: 2012Q2

REPORT INFORMATION
  Report Type: 
  Country: None (occurrence: None)
  Receive Date: 20120420
  Receipt Date: 20120412
  Transmission Date: 20120825
  Serious: Yes (Other)
  Sender: FDA-Public Use
  Company Number: KR-ABBOTT-12P-090-0925600-00

PATIENT
  Age: 25 Year
  Sex: Female
  Weight: 60 kg

DRUGS (5)
  1. KALETRA [Suspect]
     Indication: HIV INFECTION
     Route: 048
     Dates: start: 20100817, end: 20110207
  2. KALETRA [Suspect]
     Dates: start: 20110210, end: 20110214
  3. 3TC/AZT [Concomitant]
     Indication: ANTIRETROVIRAL THERAPY
     Route: 048
     Dates: start: 20100817, end: 20110208
  4. EUVAX B [Concomitant]
     Indication: ANTIVIRAL PROPHYLAXIS
     Dosage: 1 VIAL DAILY
     Route: 030
     Dates: start: 20100826, end: 20100826
  5. COMBIVIR [Concomitant]
     Indication: HIV INFECTION
     Route: 048
     Dates: start: 20100817

REACTIONS (2)
  - PREMATURE LABOUR [None]
  - VOMITING [None]
